FAERS Safety Report 4726204-6 (Version None)
Quarter: 2005Q3

REPORT INFORMATION
  Report Type: 
  Country: None (occurrence: None)
  Receive Date: 20050727
  Receipt Date: 20050721
  Transmission Date: 20060218
  Serious: Yes (Other)
  Sender: FDA-Public Use
  Company Number: US-BRISTOL-MYERS SQUIBB COMPANY-13047444

PATIENT
  Age: 58 Year
  Sex: Female

DRUGS (5)
  1. ESTRACE [Suspect]
     Indication: MENOPAUSAL SYMPTOMS
     Dates: start: 19910101, end: 19980101
  2. PREMARIN [Suspect]
     Indication: MENOPAUSAL SYMPTOMS
     Dates: start: 19910101, end: 19980101
  3. PROVERA [Suspect]
     Indication: MENOPAUSAL SYMPTOMS
     Dates: start: 19910101, end: 19980101
  4. MEDROXYPROGESTERONE [Suspect]
     Indication: MENOPAUSAL SYMPTOMS
     Dates: start: 19910101, end: 19980101
  5. PREMPRO [Suspect]
     Indication: MENOPAUSAL SYMPTOMS
     Dates: start: 19910101, end: 19980101

REACTIONS (1)
  - BREAST CANCER [None]
